FAERS Safety Report 5705937-9 (Version None)
Quarter: 2008Q2

REPORT INFORMATION
  Report Type: 
  Country: None (occurrence: None)
  Receive Date: 20080415
  Receipt Date: 20080402
  Transmission Date: 20081010
  Serious: Yes (Other)
  Sender: FDA-Public Use
  Company Number: TR-JNJFOC-20080401655

PATIENT
  Age: 15 Year
  Sex: Male

DRUGS (1)
  1. INFLIXIMAB [Suspect]
     Indication: BUDD-CHIARI SYNDROME
     Route: 042

REACTIONS (1)
  - INTRACRANIAL VENOUS SINUS THROMBOSIS [None]
